FAERS Safety Report 6361570-X (Version None)
Quarter: 2009Q3

REPORT INFORMATION
  Report Type: 
  Country: None (occurrence: None)
  Receive Date: 20090915
  Receipt Date: 20090915
  Transmission Date: 20100115
  Serious: Yes (Other)
  Sender: FDA-Public Use
  Company Number: None

PATIENT
  Age: 35 Year
  Sex: Female
  Weight: 63.5036 kg

DRUGS (2)
  1. PRISTIQ [Suspect]
     Indication: ANXIETY
     Dosage: 50 MG ONE QD. PO
     Route: 048
     Dates: start: 20090501, end: 20090801
  2. PRISTIQ [Suspect]
     Indication: DEPRESSION
     Dosage: 50 MG ONE QD. PO
     Route: 048
     Dates: start: 20090501, end: 20090801

REACTIONS (1)
  - HYPERTENSION [None]
